FAERS Safety Report 21322425 (Version 1)
Quarter: 2022Q3

REPORT INFORMATION
  Report Type: Spontaneous
  Country: US (occurrence: None)
  Receive Date: 20220911
  Receipt Date: 20220911
  Transmission Date: 20221027
  Serious: Yes (Life-Threatening, Disabling, Other)
  Sender: FDA-Public Use
  Company Number: None

PATIENT
  Age: 30 Year
  Sex: Male
  Weight: 78.3 kg

DRUGS (8)
  1. SALICYLIC ACID WART REMOVER [Suspect]
     Active Substance: SALICYLIC ACID
     Indication: Skin papilloma
     Dosage: OTHER QUANTITY : 1 PATCH(ES);?FREQUENCY : DAILY;?
     Route: 062
     Dates: start: 20220905, end: 20220910
  2. LAMOTRIGINE [Concomitant]
     Active Substance: LAMOTRIGINE
  3. CITALOPRAM [Concomitant]
     Active Substance: CITALOPRAM HYDROBROMIDE
  4. DEXTROAMPHETAMINE (DEXTROSTAT GENERIC) [Concomitant]
  5. PANTOPRAZOLE [Concomitant]
     Active Substance: PANTOPRAZOLE
  6. ALLEGRA [Concomitant]
     Active Substance: FEXOFENADINE HYDROCHLORIDE
  7. NASACORT [Concomitant]
     Active Substance: TRIAMCINOLONE ACETONIDE
  8. AMLODIPINE [Concomitant]
     Active Substance: AMLODIPINE BESYLATE

REACTIONS (13)
  - Nausea [None]
  - Abdominal pain [None]
  - Abdominal pain upper [None]
  - Burning sensation [None]
  - Thirst [None]
  - Vision blurred [None]
  - Taste disorder [None]
  - Toxicity to various agents [None]
  - Skin exfoliation [None]
  - Application site reaction [None]
  - Application site hypoaesthesia [None]
  - Abdominal distension [None]
  - Tachycardia [None]

NARRATIVE: CASE EVENT DATE: 20220910
